FAERS Safety Report 9031449 (Version 1)
Quarter: 2013Q1

REPORT INFORMATION
  Report Type: Report from Study
  Country: FR (occurrence: FR)
  Receive Date: 20130124
  Receipt Date: 20130124
  Transmission Date: 20140127
  Serious: Yes (Death)
  Sender: FDA-Public Use
  Company Number: FR-BRISTOL-MYERS SQUIBB COMPANY-17304270

PATIENT
  Age: 49 Year
  Sex: 0

DRUGS (5)
  1. PRAVASTATIN SODIUM [Suspect]
     Indication: HEPATIC CIRRHOSIS
     Dates: start: 20120406
  2. PRAVASTATIN SODIUM [Suspect]
     Indication: HEPATIC CANCER
     Dates: start: 20120406
  3. NEXAVAR [Suspect]
     Indication: HEPATIC CIRRHOSIS
     Dates: start: 20120406
  4. NEXAVAR [Suspect]
     Indication: HEPATIC CANCER
     Dates: start: 20120406
  5. SKENAN [Suspect]
     Indication: PAIN
     Dosage: 1DF: LP 30 (2 TABS) SWITCHED TO LP 40 (2 TABS) PER 24 HOURS
     Dates: start: 20120905

REACTIONS (1)
  - Posterior reversible encephalopathy syndrome [Fatal]
